FAERS Safety Report 18219245 (Version 1)
Quarter: 2020Q3

REPORT INFORMATION
  Report Type: Report from Study
  Country: EG (occurrence: EG)
  Receive Date: 20200901
  Receipt Date: 20200901
  Transmission Date: 20201103
  Serious: Yes (Death, Hospitalization)
  Sender: FDA-Public Use
  Company Number: NVSC2020EG239955

PATIENT
  Age: 43 Year
  Sex: Male

DRUGS (4)
  1. ENTRESTO [Suspect]
     Active Substance: SACUBITRIL\VALSARTAN
     Dosage: 0.5 DF, BID (100 MG HALF TABLET TWICE DAILY)
     Route: 065
     Dates: start: 201812
  2. ENTRESTO [Suspect]
     Active Substance: SACUBITRIL\VALSARTAN
     Indication: CARDIAC FAILURE
     Dosage: 0.5 DF, QD
     Route: 065
     Dates: start: 201801, end: 201812
  3. CONCOR [Concomitant]
     Active Substance: BISOPROLOL FUMARATE
     Indication: PRODUCT USED FOR UNKNOWN INDICATION
     Dosage: 5 MG, QD
     Route: 065
  4. MAREVAN [Concomitant]
     Active Substance: WARFARIN SODIUM
     Indication: PRODUCT USED FOR UNKNOWN INDICATION
     Dosage: 2.5 MG, QD
     Route: 065

REACTIONS (8)
  - Gastrooesophageal reflux disease [Fatal]
  - Blood potassium decreased [Fatal]
  - Wrong technique in product usage process [Unknown]
  - Product dose omission issue [Fatal]
  - Myocardial infarction [Fatal]
  - Product prescribing error [Recovered/Resolved]
  - Prescribed underdose [Recovered/Resolved]
  - Pulmonary oedema [Fatal]

NARRATIVE: CASE EVENT DATE: 201801
